FAERS Safety Report 4873631-2 (Version None)
Quarter: 2005Q4

REPORT INFORMATION
  Report Type: 
  Country: None (occurrence: None)
  Receive Date: 20051201
  Receipt Date: 20050824
  Transmission Date: 20060501
  Serious: No
  Sender: FDA-Public Use
  Company Number: 2005PV001510

PATIENT
  Age: 71 Year
  Sex: Female
  Weight: 73.9363 kg

DRUGS (8)
  1. BYETTA [Suspect]
     Indication: DIABETES MELLITUS NON-INSULIN-DEPENDENT
     Dosage: 5 MCG;BID;SC
     Route: 058
     Dates: start: 20050823
  2. METFORMIN [Concomitant]
  3. GLYBURIDE [Concomitant]
  4. HUMULIN [Concomitant]
  5. GLYBURIDE [Concomitant]
  6. NORVASC [Concomitant]
  7. HYZAAR [Concomitant]
  8. LIPITOR [Concomitant]

REACTIONS (8)
  - BLOOD GLUCOSE DECREASED [None]
  - DIZZINESS [None]
  - FEELING JITTERY [None]
  - HEADACHE [None]
  - HYPERHIDROSIS [None]
  - INSOMNIA [None]
  - NAUSEA [None]
  - PALPITATIONS [None]
